FAERS Safety Report 24212948 (Version 1)
Quarter: 2024Q3

REPORT INFORMATION
  Report Type: Report from Study
  Country: US (occurrence: US)
  Receive Date: 20240815
  Receipt Date: 20240815
  Transmission Date: 20241017
  Serious: Yes (Hospitalization)
  Sender: TAKEDA
  Company Number: US-TAKEDA-2024TUS080174

PATIENT
  Sex: Male

DRUGS (2)
  1. ADAMTS13, RECOMBINANT-KRHN [Suspect]
     Active Substance: ADAMTS13, RECOMBINANT-KRHN
     Indication: Product used for unknown indication
     Dosage: 3004 INTERNATIONAL UNIT, 1/WEEK
     Route: 042
     Dates: start: 20240723
  2. ADAMTS13, RECOMBINANT-KRHN [Suspect]
     Active Substance: ADAMTS13, RECOMBINANT-KRHN
     Dosage: 3004 INTERNATIONAL UNIT, 1/WEEK
     Route: 042

REACTIONS (1)
  - Platelet count abnormal [Recovering/Resolving]
